FAERS Safety Report 10414214 (Version 4)
Quarter: 2014Q4

REPORT INFORMATION
  Report Type: Spontaneous
  Country: DE (occurrence: DE)
  Receive Date: 20140827
  Receipt Date: 20141124
  Transmission Date: 20150528
  Serious: Yes (Other)
  Sender: FDA-Public Use
  Company Number: ALCN2014DE004374

PATIENT
  Age: 55 Year
  Sex: Female

DRUGS (8)
  1. VITAMIN D [Concomitant]
     Active Substance: CHOLECALCIFEROL
     Dosage: UNK
  2. AZOPT [Suspect]
     Active Substance: BRINZOLAMIDE
     Indication: INTRAOCULAR PRESSURE INCREASED
  3. MAGNESIUM [Concomitant]
     Active Substance: MAGNESIUM
     Dosage: UNK
  4. VITAMIN B6 [Concomitant]
     Active Substance: PYRIDOXINE HYDROCHLORIDE
     Dosage: UNK
  5. AZOPT [Suspect]
     Active Substance: BRINZOLAMIDE
     Indication: GLAUCOMA
     Dosage: 1 GTT, QD (IN THE EVENING)
     Route: 047
     Dates: end: 20140408
  6. SELENIUM [Concomitant]
     Active Substance: SELENIUM
     Dosage: UNK
  7. RHUS TOXICODENDRON [Concomitant]
     Dosage: UNK
  8. ACIDO FOLICO//FOLIC ACID [Concomitant]
     Dosage: UNK

REACTIONS (61)
  - Reaction to preservatives [Unknown]
  - Abasia [Recovered/Resolved]
  - Panic attack [Recovering/Resolving]
  - Speech disorder [Recovered/Resolved]
  - Pain [Recovered/Resolved]
  - Muscle spasms [Recovering/Resolving]
  - Eyelid margin crusting [Recovering/Resolving]
  - Eyelid disorder [Recovering/Resolving]
  - Visual impairment [Unknown]
  - Disturbance in attention [Recovered/Resolved]
  - Paralysis [Recovered/Resolved]
  - Gait disturbance [Recovering/Resolving]
  - Vision blurred [Recovering/Resolving]
  - Epistaxis [Recovering/Resolving]
  - Muscular weakness [Recovering/Resolving]
  - Throat irritation [Recovered/Resolved]
  - Jaw disorder [Not Recovered/Not Resolved]
  - Chest discomfort [Recovering/Resolving]
  - Blood pressure fluctuation [Recovering/Resolving]
  - Myalgia [Recovering/Resolving]
  - Photophobia [Recovering/Resolving]
  - Blister [Recovering/Resolving]
  - Ocular discomfort [Recovering/Resolving]
  - Mucosal inflammation [Unknown]
  - Diplegia [Recovered/Resolved]
  - Sleep disorder [Not Recovered/Not Resolved]
  - Palpitations [Recovering/Resolving]
  - Tremor [Recovering/Resolving]
  - Mood swings [Recovering/Resolving]
  - Ocular hyperaemia [Recovering/Resolving]
  - Noninfective gingivitis [Unknown]
  - Stress [Unknown]
  - Malaise [Recovered/Resolved]
  - Gingival swelling [Recovered/Resolved]
  - Dysphagia [Recovering/Resolving]
  - Pharyngeal erythema [Recovering/Resolving]
  - Asthenia [Recovering/Resolving]
  - Erythema [Recovering/Resolving]
  - Foreign body sensation in eyes [Recovering/Resolving]
  - Vitreous floaters [Recovering/Resolving]
  - Toothache [Recovering/Resolving]
  - Injury associated with device [Recovering/Resolving]
  - Restlessness [Unknown]
  - Headache [Recovered/Resolved]
  - Glossodynia [Not Recovered/Not Resolved]
  - Dry mouth [Recovering/Resolving]
  - Blepharospasm [Recovering/Resolving]
  - Dizziness [Unknown]
  - Cardiovascular disorder [Unknown]
  - Metal poisoning [Unknown]
  - Hypoaesthesia [Recovered/Resolved]
  - Psychomotor skills impaired [Recovering/Resolving]
  - Gingival pain [Recovering/Resolving]
  - Tinnitus [Recovering/Resolving]
  - Arthralgia [Not Recovered/Not Resolved]
  - Dysgeusia [Recovered/Resolved]
  - Nausea [Recovered/Resolved]
  - Apathy [Unknown]
  - Eye irritation [Recovered/Resolved]
  - Eyelid oedema [Recovered/Resolved]
  - Musculoskeletal discomfort [Unknown]
